FAERS Safety Report 5695757-6 (Version None)
Quarter: 2008Q2

REPORT INFORMATION
  Report Type: 
  Country: None (occurrence: None)
  Receive Date: 20080407
  Receipt Date: 20080325
  Transmission Date: 20081010
  Serious: Yes (Other)
  Sender: FDA-Public Use
  Company Number: US-ELI_LILLY_AND_COMPANY-US200802006002

PATIENT
  Sex: Male

DRUGS (3)
  1. ZYPREXA [Suspect]
     Indication: SCHIZOPHRENIA
     Dosage: 2.5 MG, EACH MORNING
     Dates: end: 20080210
  2. ZYPREXA [Suspect]
     Dosage: 10 MG, EACH EVENING
     Dates: end: 20080210
  3. KLONOPIN [Concomitant]
     Dosage: 0.5 MG, UNK

REACTIONS (2)
  - BILE DUCT OBSTRUCTION [None]
  - CHOLELITHIASIS [None]
